FAERS Safety Report 19453644 (Version 1)
Quarter: 2021Q2

REPORT INFORMATION
  Report Type: Report from Study
  Country: IT (occurrence: IT)
  Receive Date: 20210623
  Receipt Date: 20210623
  Transmission Date: 20210717
  Serious: Yes (Hospitalization)
  Sender: FDA-Public Use
  Company Number: IT-TEVA-2021-IT-1924115

PATIENT
  Age: 78 Year
  Sex: Female

DRUGS (12)
  1. BROMAZEPAM [Concomitant]
     Active Substance: BROMAZEPAM
     Dosage: 36GTT
     Route: 048
  2. NORMIX 200 MG COMPRESSE RIVESTITE CON FILM [Concomitant]
     Active Substance: RIFAXIMIN
     Dosage: 400MILLIGRAM
     Route: 048
  3. GLICLAZIDE [Concomitant]
     Active Substance: GLICLAZIDE
     Dosage: 80MILLIGRAM
     Route: 048
  4. ENTACT 10 MG COMPRESSE RIVESTITE CON FILM [Concomitant]
     Dosage: 10MILLIGRAM
     Route: 048
  5. BEZALIP 400 MG COMPRESSE A RILASCIO PROLUNGATO [Concomitant]
     Dosage: 400MILLIGRAM
     Route: 048
  6. YOVIS 1 G GRANULATO PER SOSPENSIONE ORALE [Concomitant]
     Dosage: 1GRAM
     Route: 048
  7. PANTOPRAZOLE SODIUM. [Concomitant]
     Active Substance: PANTOPRAZOLE SODIUM
     Dosage: 40MILLIGRAM
     Route: 048
  8. OXALIPLATIN. [Suspect]
     Active Substance: OXALIPLATIN
     Indication: ADENOCARCINOMA PANCREAS
     Dosage: 98.6MILLIGRAM
     Route: 041
     Dates: start: 20210428, end: 20210601
  9. FLUOROURACIL. [Suspect]
     Active Substance: FLUOROURACIL
     Indication: ADENOCARCINOMA PANCREAS
     Dosage: 3048MILLIGRAM
     Route: 041
     Dates: start: 20210428, end: 20210601
  10. LEVOPRAID  25 MG/ML GOCCE ORALI SOLUZIONE [Concomitant]
     Dosage: 30GTT
     Route: 048
  11. PARACETAMOL [Concomitant]
     Active Substance: ACETAMINOPHEN
     Dosage: 1GRAM
     Route: 048
  12. FENTANYL. [Concomitant]
     Active Substance: FENTANYL
     Dosage: 75MICROGRAM
     Route: 062

REACTIONS (2)
  - Intestinal obstruction [Not Recovered/Not Resolved]
  - Vomiting [Not Recovered/Not Resolved]

NARRATIVE: CASE EVENT DATE: 20210602
